FAERS Safety Report 25752414 (Version 1)
Quarter: 2025Q3

REPORT INFORMATION
  Report Type: Spontaneous
  Country: KR (occurrence: KR)
  Receive Date: 20250902
  Receipt Date: 20250902
  Transmission Date: 20251021
  Serious: Yes (Hospitalization)
  Sender: OTSUKA
  Company Number: KR-MMM-Otsuka-MPNE5Y81

PATIENT
  Age: 4 Decade
  Sex: Female

DRUGS (15)
  1. ARIPIPRAZOLE [Suspect]
     Active Substance: ARIPIPRAZOLE
     Indication: Bipolar disorder
     Route: 065
  2. ARIPIPRAZOLE [Concomitant]
     Active Substance: ARIPIPRAZOLE
     Indication: Bipolar disorder
     Dosage: 400 MG, QM
     Route: 065
  3. LITHIUM [Concomitant]
     Active Substance: LITHIUM
     Indication: Bipolar disorder
     Dosage: 600 MG, BID, TDM 0.8-1.0 MMOL/L
     Route: 065
  4. LITHIUM [Concomitant]
     Active Substance: LITHIUM
     Dosage: 600 MG, BID, TDM 0.4-0.6 MMOL/L
     Route: 065
  5. LITHIUM [Concomitant]
     Active Substance: LITHIUM
     Route: 065
  6. LITHIUM [Concomitant]
     Active Substance: LITHIUM
     Dosage: 600 MG, QD, TDM 0.4-0.6 MMOL/L
     Route: 065
  7. RISPERIDONE [Concomitant]
     Active Substance: RISPERIDONE
     Indication: Bipolar disorder
     Dosage: 0.5 MG, QD
     Route: 065
  8. ZIPRASIDONE [Concomitant]
     Active Substance: ZIPRASIDONE
     Indication: Bipolar disorder
     Dosage: 60 MG, QD
     Route: 065
  9. LAMOTRIGINE [Concomitant]
     Active Substance: LAMOTRIGINE
     Indication: Bipolar disorder
     Dosage: 100 MG, BID
     Route: 065
  10. LAMOTRIGINE [Concomitant]
     Active Substance: LAMOTRIGINE
     Dosage: 200 MG, QD
     Route: 065
  11. LURASIDONE [Concomitant]
     Active Substance: LURASIDONE
     Indication: Bipolar disorder
     Dosage: 30 MG, QD
     Route: 065
  12. FLUOXETINE [Concomitant]
     Active Substance: FLUOXETINE HYDROCHLORIDE
     Indication: Bipolar disorder
     Route: 065
  13. PROPRANOLOL [Concomitant]
     Active Substance: PROPRANOLOL HYDROCHLORIDE
     Indication: Bipolar disorder
     Route: 065
  14. PROPRANOLOL [Concomitant]
     Active Substance: PROPRANOLOL HYDROCHLORIDE
     Indication: Tremor
     Dosage: 40 MG, BID
     Route: 065
  15. ETIZOLAM [Concomitant]
     Active Substance: ETIZOLAM
     Indication: Bipolar disorder
     Route: 065

REACTIONS (7)
  - Condition aggravated [Unknown]
  - Feeling guilty [Unknown]
  - Ideas of reference [Unknown]
  - Depression [Unknown]
  - Suicidal ideation [Unknown]
  - Weight increased [Unknown]
  - Tremor [Unknown]
